FAERS Safety Report 18860507 (Version 1)
Quarter: 2021Q1

REPORT INFORMATION
  Report Type: Spontaneous
  Country: AU (occurrence: AU)
  Receive Date: 20210208
  Receipt Date: 20210208
  Transmission Date: 20210420
  Serious: Yes (Hospitalization, Other)
  Sender: FDA-Public Use
  Company Number: AU-LUPIN PHARMACEUTICALS INC.-2020-11801

PATIENT
  Age: 53 Year
  Sex: Male

DRUGS (1)
  1. SULFAMETHOXAZOLE AND TRIMETHOPRIM [Suspect]
     Active Substance: SULFAMETHOXAZOLE\TRIMETHOPRIM
     Indication: PROPHYLAXIS
     Dosage: UNK (THREE TIMES PER WEEK)
     Route: 065

REACTIONS (3)
  - Oedema [Recovering/Resolving]
  - Nephrogenic diabetes insipidus [Recovered/Resolved]
  - Tubulointerstitial nephritis [Recovered/Resolved]
